FAERS Safety Report 24060994 (Version 1)
Quarter: 2024Q3

REPORT INFORMATION
  Report Type: Spontaneous
  Country: US (occurrence: US)
  Receive Date: 20240708
  Receipt Date: 20240708
  Transmission Date: 20241016
  Serious: Yes (Hospitalization)
  Sender: CHIESI
  Company Number: US-CHIESI-2024CHF03975

PATIENT
  Sex: Male

DRUGS (2)
  1. BETHKIS [Suspect]
     Active Substance: TOBRAMYCIN
     Indication: Tracheostomy
     Dosage: 4 MILLILITER, BID
     Dates: start: 2024
  2. BETHKIS [Suspect]
     Active Substance: TOBRAMYCIN
     Indication: Off label use

REACTIONS (4)
  - Tracheostomy infection [Recovered/Resolved]
  - Viral infection [Recovered/Resolved]
  - Off label use [Not Recovered/Not Resolved]
  - Off label use [Not Recovered/Not Resolved]

NARRATIVE: CASE EVENT DATE: 20240101
